FAERS Safety Report 6903374-2 (Version None)
Quarter: 2010Q3

REPORT INFORMATION
  Report Type: 
  Country: None (occurrence: None)
  Receive Date: 20100803
  Receipt Date: 20080924
  Transmission Date: 20110219
  Serious: No
  Sender: FDA-Public Use
  Company Number: US-PFIZER INC-2008056502

PATIENT
  Sex: Male
  Weight: 105.9 kg

DRUGS (5)
  1. LYRICA [Suspect]
     Indication: DIABETIC NEUROPATHY
     Dates: start: 20080317
  2. VESICARE [Concomitant]
  3. GLIMEPIRIDE [Concomitant]
  4. CASODEX [Concomitant]
  5. ALL OTHER THERAPEUTIC PRODUCTS [Concomitant]

REACTIONS (5)
  - DIZZINESS [None]
  - FATIGUE [None]
  - SEDATION [None]
  - SOMNOLENCE [None]
  - WEIGHT INCREASED [None]
